FAERS Safety Report 7236372-2 (Version None)
Quarter: 2011Q1

REPORT INFORMATION
  Report Type: 
  Country: None (occurrence: None)
  Receive Date: 20110120
  Receipt Date: 20110107
  Transmission Date: 20110831
  Serious: Yes (Hospitalization)
  Sender: FDA-Public Use
  Company Number: DE-US-EMD SERONO, INC.-7034692

PATIENT
  Age: 36 Year
  Sex: Female

DRUGS (3)
  1. PROFASI HP [Suspect]
     Indication: ARTIFICIAL INSEMINATION BY DONOR
  2. PROFASI HP [Suspect]
     Indication: OVULATION INDUCTION
  3. RECOMBINANT FOLLICLE STIMULATING HORMONE (RFSH) [Suspect]
     Indication: ARTIFICIAL INSEMINATION BY DONOR
     Route: 058

REACTIONS (1)
  - CEREBRAL VASOCONSTRICTION [None]
